FAERS Safety Report 18904706 (Version 1)
Quarter: 2021Q1

REPORT INFORMATION
  Report Type: Spontaneous
  Country: FR (occurrence: FR)
  Receive Date: 20210217
  Receipt Date: 20210217
  Transmission Date: 20210420
  Serious: Yes (Life-Threatening)
  Sender: FDA-Public Use
  Company Number: FR-PURDUE-USA-2021-0212712

PATIENT
  Age: 83 Year
  Sex: Male

DRUGS (1)
  1. OXYCODONE HYDROCHLORIDE. [Suspect]
     Active Substance: OXYCODONE HYDROCHLORIDE
     Indication: MEDICATION ERROR
     Dosage: 30 MG, UNK (TOTAL)
     Route: 041
     Dates: start: 20201020, end: 20201020

REACTIONS (4)
  - Disturbance in attention [Recovered/Resolved]
  - Overdose [Recovered/Resolved]
  - Device programming error [Recovered/Resolved]
  - Incorrect dose administered [Recovered/Resolved]

NARRATIVE: CASE EVENT DATE: 20201020
